FAERS Safety Report 22251023 (Version 1)
Quarter: 2023Q2

REPORT INFORMATION
  Report Type: Spontaneous
  Country: US (occurrence: None)
  Receive Date: 20230425
  Receipt Date: 20230425
  Transmission Date: 20230721
  Serious: Yes (Other)
  Sender: FDA-Public Use
  Company Number: None

PATIENT
  Age: 40 Year
  Sex: Male
  Weight: 84.1 kg

DRUGS (16)
  1. BUPROPION HYDROCHLORIDE [Suspect]
     Active Substance: BUPROPION HYDROCHLORIDE
     Indication: Affective disorder
     Dosage: 150 MG  DAILY ORAL?
     Route: 048
     Dates: start: 20230414, end: 20230416
  2. BUSPIRONE [Concomitant]
     Active Substance: BUSPIRONE HYDROCHLORIDE
     Dates: start: 20230414, end: 20230415
  3. CARVEDILOL [Concomitant]
     Active Substance: CARVEDILOL
     Dates: start: 20230414, end: 20230416
  4. CLONIDINE [Concomitant]
     Active Substance: CLONIDINE
     Dates: start: 20230414, end: 20230416
  5. dicyclomine 20mg [Concomitant]
     Dates: start: 20230414, end: 20230414
  6. GABAPENTIN [Concomitant]
     Active Substance: GABAPENTIN
     Dates: start: 20230413, end: 20230416
  7. IBUPROFEN [Concomitant]
     Active Substance: IBUPROFEN
     Dates: start: 20230413, end: 20230416
  8. LISINOPRIL [Concomitant]
     Active Substance: LISINOPRIL
     Dates: start: 20230413, end: 20230416
  9. LORAZEPAM [Concomitant]
     Active Substance: LORAZEPAM
     Dates: start: 20230413, end: 20230416
  10. NALTREXONE [Concomitant]
     Active Substance: NALTREXONE
     Dates: start: 20230414, end: 20230416
  11. PANTOPRAZOLE SODIUM [Concomitant]
     Active Substance: PANTOPRAZOLE SODIUM
     Dates: start: 20230414, end: 20230416
  12. QUETIAPINE [Concomitant]
     Active Substance: QUETIAPINE
     Dates: start: 20230414, end: 20230415
  13. ROSUVASTATIN [Concomitant]
     Active Substance: ROSUVASTATIN
     Dates: start: 20230414, end: 20230416
  14. SERTRALINE [Concomitant]
     Active Substance: SERTRALINE HYDROCHLORIDE
     Dates: start: 20230414, end: 20230416
  15. thiamine 100mg [Concomitant]
     Dates: start: 20230414, end: 20230416
  16. multivitamin tablet [Concomitant]
     Dates: start: 20230414, end: 20230416

REACTIONS (1)
  - Lip swelling [None]

NARRATIVE: CASE EVENT DATE: 20230415
